FAERS Safety Report 5081311-6 (Version None)
Quarter: 2006Q3

REPORT INFORMATION
  Report Type: 
  Country: None (occurrence: None)
  Receive Date: 20060814
  Receipt Date: 20060814
  Transmission Date: 20061208
  Serious: Yes (Other)
  Sender: FDA-Public Use
  Company Number: None

PATIENT
  Age: 36 Year
  Sex: Female
  Weight: 86.1834 kg

DRUGS (1)
  1. NABUMETONE [Suspect]
     Indication: MYALGIA
     Dosage: 1 OR 2 TABLETS EVERY DAY PO
     Route: 048
     Dates: start: 20060809, end: 20060811

REACTIONS (2)
  - DYSPNOEA [None]
  - HYPERHIDROSIS [None]
